FAERS Safety Report 18648454 (Version 1)
Quarter: 2020Q4

REPORT INFORMATION
  Report Type: Spontaneous
  Country: GB (occurrence: GB)
  Receive Date: 20201222
  Receipt Date: 20201222
  Transmission Date: 20210114
  Serious: Yes (Disabling, Other)
  Sender: FDA-Public Use
  Company Number: GB-TEVA-2020-GB-1859715

PATIENT
  Age: 45 Year
  Sex: Female
  Weight: 63.5 kg

DRUGS (5)
  1. BETNOVATE [Suspect]
     Active Substance: BETAMETHASONE
     Indication: ECZEMA
     Dosage: FOLLOWED GUIDANCE FROM DOCTOR AND DERMATOLOGIST. USED SPARINGLY ON AFFECTED AREAS.
     Route: 061
     Dates: start: 19830111, end: 20190101
  2. LOCOID [Suspect]
     Active Substance: HYDROCORTISONE BUTYRATE
     Indication: ECZEMA
     Dosage: FOLLOWED GUIDANCE FROM DOCTOR AND DERMATOLOGIST. USED SPARINGLY ON AFFECTED AREAS.
     Route: 061
     Dates: start: 19830111, end: 20190101
  3. BETACAP [BETAMETHASONE VALERATE] [Suspect]
     Active Substance: BETAMETHASONE VALERATE
     Indication: ECZEMA
     Dosage: FOLLOWED GUIDANCE FROM DOCTOR AND DERMATOLOGIST. USED SPARINGLY ON AFFECTED AREAS.
     Route: 061
     Dates: start: 19830111, end: 20190101
  4. HYDROCORTISONE. [Suspect]
     Active Substance: HYDROCORTISONE
     Indication: ECZEMA
     Dosage: FOLLOWED GUIDANCE FROM DOCTOR AND DERMATOLOGIST. USED SPARINGLY ON AFFECTED AREAS.
     Route: 061
     Dates: start: 19830111, end: 20190101
  5. EUMOVATE [Suspect]
     Active Substance: CLOBETASONE BUTYRATE
     Indication: ECZEMA
     Dosage: FOLLOWED GUIDANCE FROM DOCTOR AND DERMATOLOGIST. USED SPARINGLY ON AFFECTED AREAS.
     Route: 061
     Dates: start: 19830111, end: 20190101

REACTIONS (15)
  - Adrenal disorder [Recovered/Resolved]
  - Dermatitis [Recovered/Resolved]
  - Lung disorder [Recovered/Resolved]
  - Lymphatic disorder [Recovered/Resolved]
  - Insomnia [Recovered/Resolved]
  - Inflammation [Recovered/Resolved]
  - Pruritus [Recovered/Resolved]
  - Neuralgia [Recovered/Resolved]
  - Skin exfoliation [Recovered/Resolved]
  - Tachyphylaxis [Unknown]
  - Steroid withdrawal syndrome [Recovered/Resolved]
  - Gastric disorder [Recovered/Resolved]
  - Skin weeping [Recovered/Resolved]
  - Anxiety [Recovered/Resolved]
  - Drug dependence [Recovered/Resolved]

NARRATIVE: CASE EVENT DATE: 20180101
